FAERS Safety Report 10090551 (Version 2)
Quarter: 2014Q2

REPORT INFORMATION
  Report Type: Spontaneous
  Country: US (occurrence: None)
  Receive Date: 20140417
  Receipt Date: 20140516
  Transmission Date: 20141212
  Serious: Yes (Hospitalization)
  Sender: FDA-Public Use
  Company Number: UTC-047049

PATIENT
  Age: 51 Year
  Sex: Female
  Weight: 89.8 kg

DRUGS (1)
  1. REMODULIN [Suspect]
     Indication: COR PULMONALE CHRONIC
     Dosage: (0.054 UG/KG, 1 IN 1 MIN)
     Route: 058
     Dates: start: 20131016

REACTIONS (1)
  - Pneumonia [None]
